FAERS Safety Report 7940595-4 (Version None)
Quarter: 2011Q4

REPORT INFORMATION
  Report Type: 
  Country: None (occurrence: None)
  Receive Date: 20111108
  Receipt Date: 20110505
  Transmission Date: 20120403
  Serious: Yes (Other)
  Sender: FDA-Public Use
  Company Number: PHEH2008US09007

PATIENT
  Sex: Female

DRUGS (6)
  1. ZOMETA [Suspect]
  2. PRILOSEC [Concomitant]
  3. ACTONEL [Suspect]
  4. VITAMIN D [Concomitant]
  5. QUININE SULFATE [Concomitant]
  6. SYNTHROID [Concomitant]

REACTIONS (8)
  - INJURY [None]
  - OSTEONECROSIS OF JAW [None]
  - DISABILITY [None]
  - EXPOSED BONE IN JAW [None]
  - WOUND DEHISCENCE [None]
  - ANHEDONIA [None]
  - PAIN [None]
  - ANXIETY [None]
